FAERS Safety Report 13290666 (Version 2)
Quarter: 2017Q1

REPORT INFORMATION
  Report Type: Spontaneous
  Country: US (occurrence: US)
  Receive Date: 20170302
  Receipt Date: 20170316
  Transmission Date: 20170428
  Serious: No
  Sender: FDA-Public Use
  Company Number: US-HORIZON-PEN-0087-2017

PATIENT
  Age: 52 Year
  Sex: Male

DRUGS (5)
  1. PENNSAID [Suspect]
     Active Substance: DICLOFENAC SODIUM
     Indication: OSTEOARTHRITIS
     Dosage: 2 PUMPS BID
  2. VICON [Concomitant]
  3. HYDROCODONE [Concomitant]
     Active Substance: HYDROCODONE
  4. FISH OIL [Concomitant]
     Active Substance: FISH OIL
  5. MULTIVITAMINS [Concomitant]
     Active Substance: VITAMINS

REACTIONS (5)
  - Feeling abnormal [Not Recovered/Not Resolved]
  - Skin tightness [Not Recovered/Not Resolved]
  - Hypoaesthesia oral [Not Recovered/Not Resolved]
  - Accidental exposure to product [Recovered/Resolved]
  - Lip discolouration [Recovered/Resolved]

NARRATIVE: CASE EVENT DATE: 20170220
